FAERS Safety Report 20290573 (Version 2)
Quarter: 2022Q2

REPORT INFORMATION
  Report Type: Spontaneous
  Country: CA (occurrence: CA)
  Receive Date: 20220104
  Receipt Date: 20220603
  Transmission Date: 20220721
  Serious: Yes (Other)
  Sender: FDA-Public Use
  Company Number: CA-PFIZER INC-2021634348

PATIENT
  Age: 32 Year
  Sex: Male

DRUGS (1)
  1. SUTENT [Suspect]
     Active Substance: SUNITINIB MALATE
     Dosage: 37.5 MG, DAILY
     Route: 048
     Dates: start: 20210528

REACTIONS (5)
  - Stenotrophomonas bacteraemia [Unknown]
  - Liver abscess [Unknown]
  - Hepatic embolisation [Unknown]
  - Atelectasis [Unknown]
  - Disease progression [Unknown]
